FAERS Safety Report 5190880-7 (Version None)
Quarter: 2006Q4

REPORT INFORMATION
  Report Type: 
  Country: None (occurrence: None)
  Receive Date: 20061222
  Receipt Date: 20060914
  Transmission Date: 20070319
  Serious: Yes (Hospitalization, Other)
  Sender: FDA-Public Use
  Company Number: US-ELI_LILLY_AND_COMPANY-US200609003707

PATIENT
  Age: 49 Year
  Sex: Male
  Weight: 95.238 kg

DRUGS (1)
  1. ZYPREXA [Suspect]
     Dosage: 40 MG, UNKNOWN
     Dates: start: 20000101

REACTIONS (6)
  - CARDIAC DISORDER [None]
  - CARDIAC PACEMAKER INSERTION [None]
  - CEREBROVASCULAR ACCIDENT [None]
  - DIABETES MELLITUS [None]
  - PANCREATITIS [None]
  - PRESCRIBED OVERDOSE [None]
